FAERS Safety Report 8545731-7 (Version None)
Quarter: 2012Q3

REPORT INFORMATION
  Report Type: 
  Country: None (occurrence: None)
  Receive Date: 20120727
  Receipt Date: 20120629
  Transmission Date: 20120928
  Serious: Yes (Hospitalization)
  Sender: FDA-Public Use
  Company Number: LT-ROCHE-1091563

PATIENT
  Sex: Female

DRUGS (4)
  1. MABTHERA [Suspect]
     Indication: PRODUCT USED FOR UNKNOWN INDICATION
     Dates: start: 20120626, end: 20120628
  2. METHYLPREDNISOLONE [Suspect]
     Indication: CHRONIC LYMPHOCYTIC LEUKAEMIA
     Route: 042
     Dates: start: 20120626, end: 20120628
  3. ALLOPURINOL [Concomitant]
     Dates: start: 20120622, end: 20120628
  4. SULFAMETHOXAZOLE AND TRIMETHOPRIM [Concomitant]
     Dates: start: 20120622, end: 20120628

REACTIONS (6)
  - HYPOXIA [None]
  - COUGH [None]
  - BRONCHITIS CHRONIC [None]
  - PYREXIA [None]
  - C-REACTIVE PROTEIN INCREASED [None]
  - WHEEZING [None]
